FAERS Safety Report 21579456 (Version 3)
Quarter: 2023Q2

REPORT INFORMATION
  Report Type: Report from Study
  Country: CO (occurrence: CO)
  Receive Date: 20221110
  Receipt Date: 20230515
  Transmission Date: 20230721
  Serious: Yes (Other)
  Sender: FDA-Public Use
  Company Number: CO-002147023-NVSC2022CO024487

PATIENT
  Sex: Male

DRUGS (2)
  1. OMNITROPE [Suspect]
     Active Substance: SOMATROPIN
     Indication: Growth hormone deficiency
     Dosage: 1.6 MG, QD
     Route: 058
     Dates: start: 20190621
  2. OMNITROPE [Suspect]
     Active Substance: SOMATROPIN
     Dosage: 1.6 MG, QD
     Route: 058
     Dates: end: 202111

REACTIONS (10)
  - Growth failure [Unknown]
  - Silver-Russell syndrome [Unknown]
  - Brain injury [Unknown]
  - Emotional disorder [Unknown]
  - Mental disorder [Unknown]
  - Depressed mood [Unknown]
  - Drug ineffective [Unknown]
  - Underdose [Unknown]
  - Product dose omission issue [Unknown]
  - Anticipatory anxiety [Unknown]
